FAERS Safety Report 25103319 (Version 1)
Quarter: 2025Q1

REPORT INFORMATION
  Report Type: Spontaneous
  Country: PL (occurrence: PL)
  Receive Date: 20250321
  Receipt Date: 20250321
  Transmission Date: 20250409
  Serious: Yes (Life-Threatening, Other)
  Sender: Kenvue
  Company Number: PL-URPL-DML-MLP.4401.1.5584.2021

PATIENT

DRUGS (1)
  1. ACETAMINOPHEN [Suspect]
     Active Substance: ACETAMINOPHEN
     Indication: Product used for unknown indication
     Route: 048

REACTIONS (2)
  - Suspected drug-induced liver injury [Recovering/Resolving]
  - Suicide attempt [Recovering/Resolving]
